FAERS Safety Report 10253544 (Version 1)
Quarter: 2014Q2

REPORT INFORMATION
  Report Type: Spontaneous
  Country: BG (occurrence: BG)
  Receive Date: 20140623
  Receipt Date: 20140623
  Transmission Date: 20141212
  Serious: Yes (Hospitalization, Other)
  Sender: FDA-Public Use
  Company Number: BG-ACTAVIS-2014-13319

PATIENT
  Age: 24 Year
  Sex: Female
  Weight: 50 kg

DRUGS (8)
  1. VERAPAMIL (UNKNOWN) [Suspect]
     Indication: SUICIDAL IDEATION
     Dosage: 20 TABLETS OF 80 MG
     Route: 048
  2. VERAPAMIL (UNKNOWN) [Suspect]
     Indication: INTENTIONAL OVERDOSE
  3. SPASMALGON [Suspect]
     Indication: SUICIDAL IDEATION
     Dosage: SEVERAL TABLETS
     Route: 048
  4. SPASMALGON [Suspect]
     Indication: INTENTIONAL OVERDOSE
  5. LOZAP /01121602/ [Suspect]
     Indication: SUICIDAL IDEATION
     Dosage: 20 TABLETS OF 50 MG EACH
     Route: 048
  6. LOZAP                              /01121602/ [Suspect]
     Indication: INTENTIONAL OVERDOSE
  7. DEANXIT [Suspect]
     Indication: SUICIDAL IDEATION
     Dosage: SEVERAL TABLETS
     Route: 048
  8. DEANXIT [Suspect]
     Indication: INTENTIONAL OVERDOSE

REACTIONS (12)
  - Metabolic acidosis [Recovered/Resolved]
  - Hypoxia [Recovered/Resolved]
  - Aspiration [Recovered/Resolved]
  - Hypotension [Recovered/Resolved]
  - Anuria [Recovered/Resolved]
  - Somnolence [Recovered/Resolved]
  - Hypovolaemia [Recovered/Resolved]
  - Tachypnoea [Recovered/Resolved]
  - Intentional overdose [Recovered/Resolved]
  - Suicide attempt [Recovered/Resolved]
  - Pleural effusion [None]
  - Anuria [None]
